FAERS Safety Report 12210405 (Version 2)
Quarter: 2017Q1

REPORT INFORMATION
  Report Type: Spontaneous
  Country: US (occurrence: US)
  Receive Date: 20160325
  Receipt Date: 20170203
  Transmission Date: 20170428
  Serious: Yes (Hospitalization)
  Sender: FDA-Public Use
  Company Number: US-SA-2016SA056337

PATIENT
  Age: 67 Year
  Sex: Female
  Weight: 44.5 kg

DRUGS (7)
  1. POTASSIUM CHLORIDE. [Concomitant]
     Active Substance: POTASSIUM CHLORIDE
     Dates: start: 20160218, end: 20160219
  2. CALCIUM CHLORIDE. [Concomitant]
     Active Substance: CALCIUM CHLORIDE
     Indication: HYPOCALCAEMIA
     Dates: start: 20160218, end: 20160220
  3. MOZOBIL [Suspect]
     Active Substance: PLERIXAFOR
     Indication: HAEMATOPOIETIC STEM CELL MOBILISATION
     Dosage: ROUTE OF INJECTION WAS 0.5 ML SUBCUTANEOUSLY. LOWER RIGHT ABDOMEN
     Route: 058
     Dates: start: 20160219, end: 20160219
  4. NEUPOGEN [Concomitant]
     Active Substance: FILGRASTIM
     Indication: HAEMATOPOIETIC STEM CELL MOBILISATION
     Dates: start: 20160214, end: 20160220
  5. ATIVAN [Concomitant]
     Active Substance: LORAZEPAM
     Indication: ANXIETY
     Dates: start: 20160218, end: 20160220
  6. MINERALS NOS/VITAMINS NOS [Concomitant]
  7. VITAMIN D/CALCIUM [Concomitant]

REACTIONS (3)
  - Ileus [Recovered/Resolved]
  - Abdominal pain [Recovered/Resolved]
  - Vomiting [Recovered/Resolved]

NARRATIVE: CASE EVENT DATE: 20160220
